FAERS Safety Report 4554716-7 (Version None)
Quarter: 2005Q1

REPORT INFORMATION
  Report Type: 
  Country: None (occurrence: None)
  Receive Date: 20041228
  Receipt Date: 20040604
  Transmission Date: 20050727
  Serious: Yes (Hospitalization)
  Sender: FDA-Public Use
  Company Number: ALMO2004022

PATIENT
  Sex: Female

DRUGS (3)
  1. AXERT [Suspect]
     Indication: MIGRAINE
  2. NARDIL [Concomitant]
  3. DOXEPIN HCL [Concomitant]

REACTIONS (1)
  - SEROTONIN SYNDROME [None]
